FAERS Safety Report 6860151-9 (Version None)
Quarter: 2010Q3

REPORT INFORMATION
  Report Type: 
  Country: None (occurrence: None)
  Receive Date: 20100720
  Receipt Date: 20070508
  Transmission Date: 20110219
  Serious: No
  Sender: FDA-Public Use
  Company Number: US-PFIZER INC-2007038094

PATIENT
  Sex: Female
  Weight: 63.05 kg

DRUGS (8)
  1. CHANTIX [Suspect]
     Indication: SMOKING CESSATION THERAPY
     Dates: start: 20070413
  2. OXYGEN [Concomitant]
  3. ALBUTEROL [Concomitant]
     Dosage: 24 HOURS A DAY
  4. ACETYLSALICYLIC ACID [Concomitant]
  5. TOPROL-XL [Concomitant]
  6. PREDNISOLONE [Concomitant]
  7. SITAGLIPTIN [Concomitant]
     Indication: BLOOD GLUCOSE INCREASED
  8. LIPITOR [Concomitant]

REACTIONS (3)
  - CONSTIPATION [None]
  - NAUSEA [None]
  - SOMNOLENCE [None]
